FAERS Safety Report 9736048 (Version 2)
Quarter: 2014Q1

REPORT INFORMATION
  Report Type: Spontaneous
  Country: US (occurrence: US)
  Receive Date: 20131206
  Receipt Date: 20140121
  Transmission Date: 20141002
  Serious: No
  Sender: FDA-Public Use
  Company Number: US-PFIZER INC-2013348425

PATIENT
  Age: 54 Year
  Sex: Male
  Weight: 109 kg

DRUGS (2)
  1. LYRICA [Suspect]
     Indication: DIABETIC NEUROPATHY
     Dosage: 75 MG, 2X/DAY
     Route: 048
  2. METHADONE [Concomitant]
     Indication: BACK PAIN
     Dosage: 5 MG, 3X/DAY

REACTIONS (4)
  - Pain [Unknown]
  - Burning sensation [Unknown]
  - Somnolence [Unknown]
  - Blood testosterone decreased [Unknown]
